FAERS Safety Report 5297472-X (Version None)
Quarter: 2007Q2

REPORT INFORMATION
  Report Type: 
  Country: None (occurrence: None)
  Receive Date: 20070406
  Receipt Date: 20070327
  Transmission Date: 20071010
  Serious: Yes (Hospitalization, Disabling)
  Sender: FDA-Public Use
  Company Number: 2007-156434-NL

PATIENT
  Age: 68 Year
  Sex: Female

DRUGS (13)
  1. MIRTAZAPINE [Suspect]
     Dosage: 30 MG QD/15 MG QD ORAL
     Route: 048
     Dates: start: 20060530, end: 20060903
  2. MIRTAZAPINE [Suspect]
     Dosage: 30 MG QD/15 MG QD ORAL
     Route: 048
     Dates: start: 20060904, end: 20070129
  3. ESCITLOPRAM OXALATE [Suspect]
     Dosage: 10 MG QD ORAL
     Route: 048
     Dates: start: 20070221, end: 20070314
  4. CITALOPRAM HYDROBROMIDE [Suspect]
     Dosage: 20 MG QD ORAL
     Route: 048
     Dates: start: 20070129, end: 20070131
  5. CO-AMILOFRUSE [Concomitant]
  6. DIAZEPAM [Concomitant]
  7. DIGOXIN [Concomitant]
  8. NICORANDIL [Concomitant]
  9. PARACETAMOL [Concomitant]
  10. PERINDOPRIL ERBUMINE [Concomitant]
  11. SENNA [Concomitant]
  12. SIMVASTATIN [Concomitant]
  13. WARFARIN SODIUM [Concomitant]

REACTIONS (4)
  - DEPERSONALISATION [None]
  - DRUG INEFFECTIVE [None]
  - DYSPHAGIA [None]
  - DYSTONIA [None]
